FAERS Safety Report 18651068 (Version 1)
Quarter: 2020Q4

REPORT INFORMATION
  Report Type: Spontaneous
  Country: US (occurrence: US)
  Receive Date: 20201223
  Receipt Date: 20201223
  Transmission Date: 20210114
  Serious: No
  Sender: FDA-Public Use
  Company Number: US-RECORDATI RARE DISEASES-2103368

PATIENT
  Age: 46 Year
  Sex: Female

DRUGS (2)
  1. ISTURISA [Suspect]
     Active Substance: OSILODROSTAT PHOSPHATE
     Indication: PITUITARY-DEPENDENT CUSHING^S SYNDROME
     Dates: start: 20200626, end: 202007
  2. ISTURISA [Suspect]
     Active Substance: OSILODROSTAT PHOSPHATE
     Dates: start: 2020

REACTIONS (7)
  - Blood glucose increased [Unknown]
  - Fatigue [Unknown]
  - Anger [Unknown]
  - Drug ineffective [Unknown]
  - Psychomotor hyperactivity [Unknown]
  - Anxiety [Not Recovered/Not Resolved]
  - Feeling cold [Unknown]

NARRATIVE: CASE EVENT DATE: 2020
